FAERS Safety Report 9354354 (Version 2)
Quarter: 2013Q2

REPORT INFORMATION
  Report Type: Spontaneous
  Country: JP (occurrence: None)
  Receive Date: 20130613
  Receipt Date: 20130628
  Transmission Date: 20140414
  Serious: Yes (Other)
  Sender: FDA-Public Use
  Company Number: SYM-2013-04504

PATIENT
  Age: 54 Year
  Sex: Male
  Weight: 54 kg

DRUGS (15)
  1. CHOREAZINE [Suspect]
     Indication: HUNTINGTON^S DISEASE
     Dosage: 1 IN 1 D
     Route: 048
     Dates: start: 20130515, end: 20130522
  2. RISPERIDONE (RISPERIDONE)(RISPERIDONE) [Concomitant]
  3. IMPROMEN (BROMPERIDOL)(BROMPERIDOL) [Concomitant]
  4. SELENICA-R (VALPROATE SODIUM)(VALPROATE SODIUM) [Concomitant]
  5. LANDSEN (CLONAZEPAM)(CLONAZEPAM) [Concomitant]
  6. GRAMALIL (TIAPRIDE HYDROCHLORIDE)(TIAPRIDE HYDROCHLORIDE) [Concomitant]
  7. AKINETON (BIPERIDEN)(BIPERIDEN) [Concomitant]
  8. ALESION (EPINASTINE HYDROCHLORIDE)(EPINASTINE HYDROCHLORIDE) [Concomitant]
  9. ZYRTEC (CETIRIZINE HYDROCHLORIDE)(CETIRIZINE HYDROCHLORIDE) [Concomitant]
  10. ATARAX-P(HYDROXYZINE EMBONATE)(HYDROXYZINE EMBONATE) [Concomitant]
  11. URSO (URSODEOXYCHOLIC ACID)(URSODEOXYCHOLIC ACID) [Concomitant]
  12. SEROQUEL (QUETIAPINE FUMARATE)(QUETIAPINE FUMARATE) [Concomitant]
  13. LINTON (HALOPERIDOL)(HALOPERIDOL) [Concomitant]
  14. ZYPREXA (OLANZAPINE) [Concomitant]
  15. YOKUKANSAN (YOKUKANSAN)(ANGELICA ACUTILOBA ROOT, PORIA COCOS SCLEROTIUM, ATRACTYLODES LANCEA RHIZOME, BUPLEURUM FALCATUM ROOT, CNIDIUM OFFICINALE RHIZOME, BUPLEURUM FALCATUM ROOT, CNIDIUM OFFICINALE RHIZOME, UNCARIA SPP. HOOK, GLYCYRRHIZA SPP. ROOT) [Concomitant]

REACTIONS (1)
  - Bradycardia [None]
